FAERS Safety Report 16600572 (Version 1)
Quarter: 2019Q3

REPORT INFORMATION
  Report Type: Spontaneous
  Country: GB (occurrence: GB)
  Receive Date: 20190719
  Receipt Date: 20190719
  Transmission Date: 20191004
  Serious: Yes (Other)
  Sender: FDA-Public Use
  Company Number: GB-GILEAD-2019-0419046

PATIENT
  Age: 56 Year
  Sex: Male

DRUGS (12)
  1. VEMLIDY [Suspect]
     Active Substance: TENOFOVIR ALAFENAMIDE FUMARATE
     Indication: HIV INFECTION
  2. VEMLIDY [Suspect]
     Active Substance: TENOFOVIR ALAFENAMIDE FUMARATE
     Indication: HEPATITIS B
     Route: 065
  3. HEPSERA [Concomitant]
     Active Substance: ADEFOVIR DIPIVOXIL
  4. DOLUTEGRAVIR [Concomitant]
     Active Substance: DOLUTEGRAVIR
  5. ENTECAVIR. [Concomitant]
     Active Substance: ENTECAVIR
  6. RITONAVIR. [Concomitant]
     Active Substance: RITONAVIR
  7. ALFACALCIDOL [Concomitant]
     Active Substance: ALFACALCIDOL
  8. DARUNAVIR [Concomitant]
     Active Substance: DARUNAVIR
  9. LAMIVUDINE. [Concomitant]
     Active Substance: LAMIVUDINE
  10. EMTRIVA [Concomitant]
     Active Substance: EMTRICITABINE
  11. RALTEGRAVIR. [Concomitant]
     Active Substance: RALTEGRAVIR
  12. PHOSPHATES [SODIUM PHOSPHATE] [Concomitant]

REACTIONS (1)
  - Bone pain [Recovered/Resolved]
